FAERS Safety Report 18607678 (Version 1)
Quarter: 2020Q4

REPORT INFORMATION
  Report Type: Spontaneous
  Country: US (occurrence: US)
  Receive Date: 20201211
  Receipt Date: 20201211
  Transmission Date: 20210114
  Serious: No
  Sender: FDA-Public Use
  Company Number: US-ASTRAZENECA-2020SF51832

PATIENT
  Age: 712 Month
  Sex: Female
  Weight: 59 kg

DRUGS (4)
  1. BUDESONIDE AND FORMOTEROL AEROSOL [Suspect]
     Active Substance: BUDESONIDE\FORMOTEROL FUMARATE DIHYDRATE
     Indication: EMPHYSEMA
     Dosage: 160/4.5MCG 2 PUFFS TWICE DAILY
     Route: 055
     Dates: start: 20201010, end: 20201024
  2. ALBUTEROL. [Concomitant]
     Active Substance: ALBUTEROL
     Indication: PRODUCT USED FOR UNKNOWN INDICATION
     Dosage: 90.0UG AS REQUIRED
     Route: 055
     Dates: start: 201909
  3. PREDNISONE. [Concomitant]
     Active Substance: PREDNISONE
  4. BUDESONIDE AND FORMOTEROL AEROSOL [Suspect]
     Active Substance: BUDESONIDE\FORMOTEROL FUMARATE DIHYDRATE
     Indication: EMPHYSEMA
     Dosage: 160/4.5MCG 1 PUFF TWICE DAILY
     Route: 055
     Dates: start: 20201024

REACTIONS (4)
  - Irritability [Recovering/Resolving]
  - Product use issue [Not Recovered/Not Resolved]
  - Eating disorder [Not Recovered/Not Resolved]
  - Weight increased [Unknown]

NARRATIVE: CASE EVENT DATE: 202010
